FAERS Safety Report 16336542 (Version 1)
Quarter: 2019Q2

REPORT INFORMATION
  Report Type: Spontaneous
  Country: US (occurrence: US)
  Receive Date: 20190520
  Receipt Date: 20190520
  Transmission Date: 20190711
  Serious: Yes (Disabling)
  Sender: FDA-Public Use
  Company Number: None

PATIENT
  Age: 68 Year
  Sex: Female
  Weight: 60.75 kg

DRUGS (8)
  1. LISINOPRIL. [Concomitant]
     Active Substance: LISINOPRIL
  2. SUMATRIPTAN. [Concomitant]
     Active Substance: SUMATRIPTAN
  3. OMEPRAZOLE. [Concomitant]
     Active Substance: OMEPRAZOLE
  4. BIOTIN [Concomitant]
     Active Substance: BIOTIN
  5. LEVOFLOXACIN. [Suspect]
     Active Substance: LEVOFLOXACIN
  6. OMEGA OIL [Concomitant]
  7. CIPROFLOXACIN. [Suspect]
     Active Substance: CIPROFLOXACIN
     Indication: PRODUCT USED FOR UNKNOWN INDICATION
     Route: 048
     Dates: start: 20190502, end: 20190503
  8. ALLEGRA [Concomitant]
     Active Substance: FEXOFENADINE HYDROCHLORIDE

REACTIONS (11)
  - Myalgia [None]
  - Swelling face [None]
  - Rash [None]
  - Oropharyngeal pain [None]
  - Tendonitis [None]
  - Dysphonia [None]
  - Eye irritation [None]
  - Erythema [None]
  - Peripheral swelling [None]
  - Swollen tongue [None]
  - Neuralgia [None]

NARRATIVE: CASE EVENT DATE: 20190502
